FAERS Safety Report 7221436-X (Version None)
Quarter: 2011Q1

REPORT INFORMATION
  Report Type: 
  Country: None (occurrence: None)
  Receive Date: 20110112
  Receipt Date: 20110104
  Transmission Date: 20110831
  Serious: Yes (Death)
  Sender: FDA-Public Use
  Company Number: US-GILEAD-2010-0034690

PATIENT
  Sex: Female

DRUGS (15)
  1. DILTIAZEM [Concomitant]
  2. SIMVASTATIN [Concomitant]
  3. NIASPAN [Concomitant]
  4. PREDNISONE [Concomitant]
  5. ATENOLOL [Concomitant]
  6. LANSOPRAZOLE [Concomitant]
  7. LETAIRIS [Suspect]
     Indication: PULMONARY ARTERIAL HYPERTENSION
     Route: 048
     Dates: start: 20101012, end: 20101214
  8. FLUTICASONE PROPIONATE [Concomitant]
  9. METFORMIN [Concomitant]
  10. ASPIRIN [Concomitant]
  11. MAGNESIUM [Concomitant]
  12. TRICOR [Concomitant]
  13. LISINOPRIL [Concomitant]
  14. ADVAIR DISKUS 100/50 [Concomitant]
  15. MULTI-VITAMINS [Concomitant]

REACTIONS (1)
  - PULMONARY FIBROSIS [None]
